FAERS Safety Report 16979489 (Version 3)
Quarter: 2020Q3

REPORT INFORMATION
  Report Type: Report from Study
  Country: JP (occurrence: JP)
  Receive Date: 20191031
  Receipt Date: 20191204
  Transmission Date: 20201104
  Serious: Yes (Hospitalization)
  Sender: FDA-Public Use
  Company Number: JP-SA-2019SA296635

PATIENT
  Age: 78 Year
  Sex: Female
  Weight: 30.2 kg

DRUGS (13)
  1. FLUOROURACIL. [Suspect]
     Active Substance: FLUOROURACIL
     Dosage: 260 MG/M2, QOW(320 MG/M2, QOW(ONCE IN 2WEEKS)
     Route: 040
     Dates: start: 20190813
  2. FLUOROURACIL. [Suspect]
     Active Substance: FLUOROURACIL
     Dosage: 2400 MG/M2, QOW(320 MG/M2, QOW(ONCE IN 2WEEKS)
     Route: 041
     Dates: start: 20190510, end: 20190617
  3. FLUOROURACIL. [Suspect]
     Active Substance: FLUOROURACIL
     Dosage: 1900 MG/M2, QOW(320 MG/M2, QOW(ONCE IN 2WEEKS)
     Route: 041
     Dates: start: 20190618, end: 20190701
  4. ZOLBETUXIMAB. [Suspect]
     Active Substance: ZOLBETUXIMAB
     Indication: GASTRIC CANCER
     Dosage: 800 MG/M2, Q3W (ONCE IN 3WEEKS)
     Route: 041
     Dates: start: 20190510
  5. OXALIPLATIN. [Suspect]
     Active Substance: OXALIPLATIN
     Dosage: 50 MG/M2, QOW(ONCE IN 2WEEKS)
     Route: 041
     Dates: start: 20190805
  6. PRIMPERAN [Concomitant]
     Active Substance: METOCLOPRAMIDE HYDROCHLORIDE
     Dosage: UNK UNK, UNK
     Dates: start: 20190513
  7. WYPAX [Concomitant]
     Active Substance: LORAZEPAM
     Dosage: UNK
     Dates: start: 20190513
  8. OXALIPLATIN. [Suspect]
     Active Substance: OXALIPLATIN
     Dosage: 65 MG/M2, QOW (ONCE IN 2WEEKS)
     Route: 041
     Dates: start: 20190528, end: 20190701
  9. OXALIPLATIN. [Suspect]
     Active Substance: OXALIPLATIN
     Indication: GASTRIC CANCER
     Dosage: 85 MG/M2, QOW (ONCE IN 2WEEKS)
     Route: 041
     Dates: start: 20190510, end: 20190527
  10. FLUOROURACIL. [Suspect]
     Active Substance: FLUOROURACIL
     Dosage: 1500 MG/M2, QOW
     Route: 041
     Dates: start: 20190813
  11. CALCIUM LEVOFOLINATE [Suspect]
     Active Substance: LEVOLEUCOVORIN CALCIUM
     Indication: GASTRIC CANCER
     Dosage: 200 MG, QOW320 MG/M2, QOW(ONCE IN 2WEEKS)
     Route: 041
     Dates: start: 20190510
  12. FLUOROURACIL. [Suspect]
     Active Substance: FLUOROURACIL
     Indication: GASTRIC CANCER
     Dosage: 400 MG/M2, QOW (ONCE IN 2WEEKS)
     Route: 040
     Dates: start: 20190510, end: 20190617
  13. FLUOROURACIL. [Suspect]
     Active Substance: FLUOROURACIL
     Dosage: 320 MG/M2, QOW(ONCE IN 2WEEKS)
     Route: 040
     Dates: start: 20190618, end: 20190701

REACTIONS (2)
  - Decreased appetite [Recovered/Resolved]
  - Nausea [Recovered/Resolved]

NARRATIVE: CASE EVENT DATE: 20191015
